FAERS Safety Report 8366469-5 (Version None)
Quarter: 2012Q2

REPORT INFORMATION
  Report Type: 
  Country: None (occurrence: None)
  Receive Date: 20120517
  Receipt Date: 20120511
  Transmission Date: 20120825
  Serious: Yes (Hospitalization, Other)
  Sender: FDA-Public Use
  Company Number: US-BAYER-2011-085207

PATIENT
  Age: 20 Year
  Sex: Female
  Weight: 41.723 kg

DRUGS (5)
  1. ZEGERID [Concomitant]
  2. MAGNESIUM HYDROXIDE TAB [Concomitant]
  3. YASMIN [Suspect]
     Indication: MENSTRUATION IRREGULAR
     Dosage: UNK
     Dates: start: 20040101, end: 20090101
  4. CARAFATE [Concomitant]
     Dosage: UNK
     Dates: start: 20070716
  5. DROSPIRENONE AND ETHINYL ESTRADIOL [Suspect]
     Indication: MENSTRUATION IRREGULAR
     Dosage: UNK
     Dates: start: 20040101, end: 20090101

REACTIONS (7)
  - BILIARY DYSKINESIA [None]
  - INJURY [None]
  - PAIN [None]
  - CHOLECYSTITIS CHRONIC [None]
  - GALLBLADDER DISORDER [None]
  - EMOTIONAL DISTRESS [None]
  - ANXIETY [None]
